FAERS Safety Report 7200411-5 (Version None)
Quarter: 2010Q4

REPORT INFORMATION
  Report Type: 
  Country: None (occurrence: None)
  Receive Date: 20101228
  Receipt Date: 20101220
  Transmission Date: 20110411
  Serious: Yes (Other)
  Sender: FDA-Public Use
  Company Number: US-MYLANLABS-2010S1019369

PATIENT
  Age: 26 Year
  Sex: Female

DRUGS (2)
  1. AMNESTEEM [Suspect]
     Dates: start: 20100707
  2. AMNESTEEM [Suspect]
     Dates: start: 20100707

REACTIONS (2)
  - ABORTION INDUCED [None]
  - DRUG EXPOSURE DURING PREGNANCY [None]
